FAERS Safety Report 7917689-2 (Version None)
Quarter: 2011Q4

REPORT INFORMATION
  Report Type: 
  Country: None (occurrence: None)
  Receive Date: 20111116
  Receipt Date: 20111107
  Transmission Date: 20120403
  Serious: No
  Sender: FDA-Public Use
  Company Number: US-JNJFOC-20111104001

PATIENT
  Age: 5 Year
  Sex: Male

DRUGS (1)
  1. PALIPERIDONE [Suspect]
     Indication: ABNORMAL BEHAVIOUR
     Dosage: 39 MG/0.25 ML
     Route: 030

REACTIONS (1)
  - INCREASED APPETITE [None]
